FAERS Safety Report 7476244-1 (Version None)
Quarter: 2011Q2

REPORT INFORMATION
  Report Type: 
  Country: None (occurrence: None)
  Receive Date: 20110510
  Receipt Date: 20110510
  Transmission Date: 20111010
  Serious: Yes (Death)
  Sender: FDA-Public Use
  Company Number: None

PATIENT
  Sex: Female
  Weight: 66.8 kg

DRUGS (7)
  1. CREON [Concomitant]
  2. CITALOPRAM [Concomitant]
  3. LISINOPRIL [Concomitant]
  4. EVEROLIMUS 5MG/NOVARTIS [Suspect]
     Indication: PANCREATIC CARCINOMA METASTATIC
     Dosage: 5MG DAILY BY MOUTH
     Route: 048
     Dates: start: 20100316, end: 20100318
  5. ALBUTEROL [Concomitant]
  6. NOVOLOG [Concomitant]
  7. PRILOSEC [Concomitant]

REACTIONS (2)
  - ASCITES [None]
  - VOLVULUS [None]
